FAERS Safety Report 19011889 (Version 5)
Quarter: 2021Q3

REPORT INFORMATION
  Report Type: Spontaneous
  Country: US (occurrence: US)
  Receive Date: 20210315
  Receipt Date: 20210922
  Transmission Date: 20211014
  Serious: Yes (Other)
  Sender: FDA-Public Use
  Company Number: US-PFIZER INC-2021247805

PATIENT
  Age: 52 Year
  Sex: Female

DRUGS (1)
  1. XELJANZ XR [Suspect]
     Active Substance: TOFACITINIB CITRATE
     Dosage: 11 MG

REACTIONS (7)
  - Diarrhoea [Not Recovered/Not Resolved]
  - Arthritis [Unknown]
  - Intentional dose omission [Unknown]
  - Joint swelling [Unknown]
  - Colitis ulcerative [Not Recovered/Not Resolved]
  - Arthralgia [Unknown]
  - Psoriasis [Not Recovered/Not Resolved]

NARRATIVE: CASE EVENT DATE: 202108
